FAERS Safety Report 13963352 (Version 1)
Quarter: 2017Q3

REPORT INFORMATION
  Report Type: Spontaneous
  Country: US (occurrence: US)
  Receive Date: 20170913
  Receipt Date: 20170913
  Transmission Date: 20171128
  Serious: No
  Sender: FDA-Public Use
  Company Number: US-ENDO PHARMACEUTICALS INC-2016-007269

PATIENT
  Age: 57 Year
  Sex: Female

DRUGS (1)
  1. OXYCODONE/ACETAMINOPHEN TABLETS [Suspect]
     Active Substance: ACETAMINOPHEN\OXYCODONE HYDROCHLORIDE
     Indication: PRODUCT USED FOR UNKNOWN INDICATION
     Dosage: UNK, AS NEEDED, EVERY 4 OR 6 HOURS
     Route: 065
     Dates: start: 2016

REACTIONS (2)
  - Incontinence [Recovering/Resolving]
  - Chromaturia [Unknown]
